FAERS Safety Report 4396128-5 (Version None)
Quarter: 2004Q3

REPORT INFORMATION
  Report Type: 
  Country: None (occurrence: None)
  Receive Date: 20040706
  Receipt Date: 20040621
  Transmission Date: 20050211
  Serious: Yes (Hospitalization)
  Sender: FDA-Public Use
  Company Number: B0336326A

PATIENT
  Age: 47 Year
  Sex: Female

DRUGS (4)
  1. LITHIUM SALT (GENERIC) (LITHIUM SALT) [Suspect]
     Dosage: SEE DOSAGE TEXT
  2. HALOPERIDOL [Concomitant]
  3. VALPROIC ACID [Concomitant]
  4. METHOTRIMEPRAZINE [Concomitant]

REACTIONS (8)
  - AGITATION [None]
  - ANXIETY [None]
  - BLOOD CREATININE INCREASED [None]
  - HYPOMANIA [None]
  - HYPONATRAEMIA [None]
  - NEPHROGENIC DIABETES INSIPIDUS [None]
  - SLEEP DISORDER [None]
  - TOXIC DILATATION OF COLON [None]
